FAERS Safety Report 13291228 (Version 1)
Quarter: 2017Q1

REPORT INFORMATION
  Report Type: Spontaneous
  Country: JP (occurrence: JP)
  Receive Date: 20170303
  Receipt Date: 20170303
  Transmission Date: 20170428
  Serious: Yes (Hospitalization, Other)
  Sender: FDA-Public Use
  Company Number: PHJP2017JP006675

PATIENT
  Age: 30 Year
  Sex: Female

DRUGS (3)
  1. NEORAL [Suspect]
     Active Substance: CYCLOSPORINE
     Indication: IMMUNE THROMBOCYTOPENIC PURPURA
     Dosage: 250 MG, QD
     Route: 048
     Dates: start: 200809
  2. PREDNISOLONE. [Concomitant]
     Active Substance: PREDNISOLONE
     Indication: IMMUNE THROMBOCYTOPENIC PURPURA
     Dosage: 7.5 TO 50 MG, UNK
     Route: 065
  3. REVOLADE TAB [Suspect]
     Active Substance: ELTROMBOPAG
     Indication: IMMUNE THROMBOCYTOPENIC PURPURA
     Dosage: 12.5 MG, QD
     Route: 048

REACTIONS (6)
  - Intracranial venous sinus thrombosis [Unknown]
  - Platelet count decreased [Recovering/Resolving]
  - Drug effect incomplete [Unknown]
  - Headache [Recovering/Resolving]
  - Product use issue [Unknown]
  - Cerebral infarction [Unknown]
